FAERS Safety Report 16653486 (Version 2)
Quarter: 2019Q3

REPORT INFORMATION
  Report Type: Report from Study
  Country: US (occurrence: US)
  Receive Date: 20190731
  Receipt Date: 20190806
  Transmission Date: 20191004
  Serious: Yes (Hospitalization, Other)
  Sender: FDA-Public Use
  Company Number: US-BRISTOL-MYERS SQUIBB COMPANY-BMS-2019-074026

PATIENT
  Age: 60 Year
  Sex: Male
  Weight: 104.6 kg

DRUGS (3)
  1. PACLITAXEL ALBUMIN [Suspect]
     Active Substance: PACLITAXEL
     Indication: ADENOCARCINOMA PANCREAS
     Dosage: 65 ABSENT
     Route: 065
     Dates: start: 20180918
  2. NIVOLUMAB [Suspect]
     Active Substance: NIVOLUMAB
     Indication: ADENOCARCINOMA PANCREAS
     Dosage: 240 MILLIGRAM
     Route: 065
     Dates: start: 20180918
  3. GEMCITABINE HYDROCHLORIDE. [Suspect]
     Active Substance: GEMCITABINE HYDROCHLORIDE
     Indication: ADENOCARCINOMA PANCREAS
     Dosage: 640 ABSENT
     Route: 065
     Dates: start: 20180918

REACTIONS (4)
  - Acute kidney injury [Not Recovered/Not Resolved]
  - Tubulointerstitial nephritis [Unknown]
  - Haemolytic anaemia [Unknown]
  - Thrombotic microangiopathy [Unknown]

NARRATIVE: CASE EVENT DATE: 20190720
